FAERS Safety Report 5989636-4 (Version None)
Quarter: 2008Q4

REPORT INFORMATION
  Report Type: 
  Country: None (occurrence: None)
  Receive Date: 20081208
  Receipt Date: 20081121
  Transmission Date: 20090506
  Serious: Yes (Hospitalization, Other)
  Sender: FDA-Public Use
  Company Number: 1000002998

PATIENT
  Age: 65 Year
  Sex: Male

DRUGS (2)
  1. ESCITALOPRAM OXALATE [Suspect]
     Dosage: 6 MG (6 MG, 1 IN 1 D) ,ORAL
     Route: 048
  2. ESCITALOPRAM OXALATE [Suspect]
     Dosage: 4 MG (4 MG, 1 IN 1 D), ORAL
     Route: 048

REACTIONS (8)
  - ACUTE RESPIRATORY DISTRESS SYNDROME [None]
  - ALCOHOLISM [None]
  - BLOOD UREA INCREASED [None]
  - DISTURBANCE IN ATTENTION [None]
  - ENCEPHALOPATHY [None]
  - GAIT DISTURBANCE [None]
  - HYPOKINESIA [None]
  - LIVER DISORDER [None]
